FAERS Safety Report 8460161-4 (Version None)
Quarter: 2012Q2

REPORT INFORMATION
  Report Type: 
  Country: None (occurrence: None)
  Receive Date: 20120323
  Receipt Date: 20111020
  Transmission Date: 20120825
  Serious: Yes (Disabling)
  Sender: FDA-Public Use
  Company Number: 163-21880-11101685

PATIENT
  Age: 69 Year
  Sex: Male
  Weight: 82 kg

DRUGS (20)
  1. REVLIMID [Suspect]
     Indication: MULTIPLE MYELOMA
     Dosage: 25 MG, 1 IN 1 D, PO 25 MG, 1 IN 1 D, PO 15 MG, QD, DAYS 1-21, PO 10 MG, FOR 21 DAYS, PO
     Route: 048
     Dates: start: 20111001
  2. REVLIMID [Suspect]
     Indication: MULTIPLE MYELOMA
     Dosage: 25 MG, 1 IN 1 D, PO 25 MG, 1 IN 1 D, PO 15 MG, QD, DAYS 1-21, PO 10 MG, FOR 21 DAYS, PO
     Route: 048
     Dates: start: 20110401
  3. REVLIMID [Suspect]
     Indication: MULTIPLE MYELOMA
     Dosage: 25 MG, 1 IN 1 D, PO 25 MG, 1 IN 1 D, PO 15 MG, QD, DAYS 1-21, PO 10 MG, FOR 21 DAYS, PO
     Route: 048
     Dates: start: 20100601
  4. REVLIMID [Suspect]
     Indication: MULTIPLE MYELOMA
     Dosage: 25 MG, 1 IN 1 D, PO 25 MG, 1 IN 1 D, PO 15 MG, QD, DAYS 1-21, PO 10 MG, FOR 21 DAYS, PO
     Route: 048
     Dates: start: 20110823
  5. LAMICTAL [Concomitant]
  6. NUVIGIL (ARMODAFINIL) (UNKNOWN) [Concomitant]
  7. ABILIFY (ARIPIPRAZOLE) (UNKNOWN) [Concomitant]
  8. BACTRIM DS (BACTRIM) (UNKNOWN) [Concomitant]
  9. PROCOR (AMIODARONE HYDROCHLORIDE) (UNKNOWN) [Concomitant]
  10. LIPITOR [Concomitant]
  11. METOPROLOL TARTRATE [Concomitant]
  12. LORAZEPAM [Concomitant]
  13. LOPRESSOR [Concomitant]
  14. LISINOPRIL [Concomitant]
  15. ZYRTEC [Concomitant]
  16. PROSCAR (FINASTERIDE) (UNKNOWN) [Concomitant]
  17. PROTONIX (PANTOPRAZOLE) (UNKNOWN) [Concomitant]
  18. PLAVIX [Concomitant]
  19. BENZONATATE [Concomitant]
  20. SEROQUEL [Concomitant]

REACTIONS (2)
  - NEUROPATHY PERIPHERAL [None]
  - HYPOAESTHESIA [None]
